FAERS Safety Report 8363211-9 (Version None)
Quarter: 2012Q2

REPORT INFORMATION
  Report Type: 
  Country: None (occurrence: None)
  Receive Date: 20120516
  Receipt Date: 20120510
  Transmission Date: 20120825
  Serious: Yes (Other)
  Sender: FDA-Public Use
  Company Number: FR-PFIZER INC-2012115285

PATIENT
  Age: 23 Year
  Sex: Male

DRUGS (1)
  1. SOMATROPIN [Suspect]
     Dosage: UNK
     Dates: start: 20020902, end: 20081218

REACTIONS (2)
  - MENINGIOMA [None]
  - NEOPLASM RECURRENCE [None]
